FAERS Safety Report 10174225 (Version 1)
Quarter: 2014Q2

REPORT INFORMATION
  Report Type: Spontaneous
  Country: IT (occurrence: IT)
  Receive Date: 20140515
  Receipt Date: 20140515
  Transmission Date: 20141212
  Serious: Yes (Hospitalization, Other)
  Sender: FDA-Public Use
  Company Number: IT-WATSON-2014-09759

PATIENT
  Age: 50 Year
  Sex: Female

DRUGS (2)
  1. DISULFIRAM (UNKNOWN) [Suspect]
     Indication: ALCOHOL ABUSE
     Dosage: 800 MG, DAILY
     Route: 065
  2. DISULFIRAM (UNKNOWN) [Suspect]
     Dosage: 400 MG, DAILY
     Route: 065

REACTIONS (15)
  - Wernicke^s encephalopathy [Recovered/Resolved]
  - Paraparesis [Recovering/Resolving]
  - Psychomotor retardation [Recovered/Resolved]
  - Gait disturbance [Recovered/Resolved]
  - Dysarthria [Recovered/Resolved]
  - Asthenia [Recovered/Resolved]
  - Hypophagia [Recovered/Resolved]
  - Urinary incontinence [Recovered/Resolved]
  - Hypotonia [Recovered/Resolved]
  - Confabulation [Recovered/Resolved]
  - Polyneuropathy [Recovered/Resolved]
  - Memory impairment [Recovered/Resolved]
  - Delirium [Recovered/Resolved]
  - Toxicity to various agents [Recovered/Resolved]
  - Accidental overdose [Recovered/Resolved]
